FAERS Safety Report 23315816 (Version 3)
Quarter: 2024Q1

REPORT INFORMATION
  Report Type: Spontaneous
  Country: PL (occurrence: PL)
  Receive Date: 20231219
  Receipt Date: 20240103
  Transmission Date: 20240410
  Serious: Yes (Other)
  Sender: FDA-Public Use
  Company Number: PL-MLMSERVICE-20231205-4710752-1

PATIENT
  Age: 41 Year
  Sex: Male

DRUGS (2)
  1. METHYLPREDNISOLONE [Suspect]
     Active Substance: METHYLPREDNISOLONE
     Indication: Dermatitis atopic
     Dosage: 4 MG, 2X/DAY
     Route: 048
  2. METHYLPREDNISOLONE [Suspect]
     Active Substance: METHYLPREDNISOLONE
     Indication: Dermatitis exfoliative generalised
     Dosage: 2 MG, 2X/DAY
     Route: 048

REACTIONS (3)
  - Secondary adrenocortical insufficiency [Unknown]
  - Cushing^s syndrome [Unknown]
  - Drug abuse [Recovered/Resolved]
